FAERS Safety Report 9312982 (Version 1)
Quarter: 2013Q2

REPORT INFORMATION
  Report Type: Spontaneous
  Country: US (occurrence: US)
  Receive Date: 20130528
  Receipt Date: 20130528
  Transmission Date: 20140414
  Serious: No
  Sender: FDA-Public Use
  Company Number: US-ABBOTT-13P-163-1087181-00

PATIENT
  Sex: Male
  Weight: 113.5 kg

DRUGS (5)
  1. ANDROGEL [Suspect]
     Indication: HYPOGONADISM
     Dates: start: 201111, end: 201303
  2. ANDROGEL [Suspect]
     Dates: start: 201303, end: 201304
  3. ANDROGEL [Suspect]
     Dates: start: 20130410
  4. NIASPAN [Concomitant]
     Indication: ARTERIOSCLEROSIS
  5. CRESTOR [Concomitant]
     Indication: HYPERLIPIDAEMIA

REACTIONS (2)
  - Blood testosterone decreased [Not Recovered/Not Resolved]
  - Fatigue [Not Recovered/Not Resolved]
